FAERS Safety Report 4786103-0 (Version None)
Quarter: 2005Q3

REPORT INFORMATION
  Report Type: 
  Country: None (occurrence: None)
  Receive Date: 20050930
  Receipt Date: 20050921
  Transmission Date: 20060218
  Serious: Yes (Hospitalization, Other)
  Sender: FDA-Public Use
  Company Number: A-CH2005-09407

PATIENT
  Age: 47 Year
  Sex: Female
  Weight: 54 kg

DRUGS (8)
  1. TRACLEER [Suspect]
     Indication: PULMONARY HYPERTENSION
     Dosage: SEE IMAGE
     Route: 048
     Dates: start: 20031030, end: 20041123
  2. TRACLEER [Suspect]
     Indication: PULMONARY HYPERTENSION
     Dosage: SEE IMAGE
     Route: 048
     Dates: start: 20031124
  3. METHOTREXATE [Suspect]
     Dates: start: 20041004
  4. CYCLOPHOSPHAMIDE [Concomitant]
  5. SOLU-MEDROL [Concomitant]
  6. HYDROCORTISONE [Concomitant]
  7. LEDERFOLIN (CALCIUM FOLINATE) [Concomitant]
  8. AMITRIPTYLINE HCL [Concomitant]

REACTIONS (5)
  - ANTIPHOSPHOLIPID SYNDROME [None]
  - MICROSCOPIC POLYANGIITIS [None]
  - NEPHROTIC SYNDROME [None]
  - RENAL VASCULITIS [None]
  - SLEEP DISORDER [None]
